FAERS Safety Report 16346251 (Version 1)
Quarter: 2019Q2

REPORT INFORMATION
  Report Type: Spontaneous
  Country: GR (occurrence: GR)
  Receive Date: 20190523
  Receipt Date: 20190523
  Transmission Date: 20190711
  Serious: Yes (Other)
  Sender: FDA-Public Use
  Company Number: GR-BAUSCH-BL-2019-014659

PATIENT
  Age: 75 Year
  Sex: Male

DRUGS (1)
  1. ACYCLOVIR. [Suspect]
     Active Substance: ACYCLOVIR
     Indication: HERPES ZOSTER OTICUS
     Route: 065

REACTIONS (5)
  - Headache [Recovering/Resolving]
  - Nuchal rigidity [Recovering/Resolving]
  - Herpes zoster meningitis [Recovering/Resolving]
  - Pyrexia [Recovering/Resolving]
  - Herpes zoster [Recovering/Resolving]
